FAERS Safety Report 13834583 (Version 1)
Quarter: 2017Q3

REPORT INFORMATION
  Report Type: Spontaneous
  Country: US (occurrence: US)
  Receive Date: 20170804
  Receipt Date: 20170804
  Transmission Date: 20171127
  Serious: No
  Sender: FDA-Public Use
  Company Number: US-PRINSTON PHARMACEUTICAL INC.-2017PRN00365

PATIENT
  Sex: Female
  Weight: 54 kg

DRUGS (15)
  1. LYRICA [Concomitant]
     Active Substance: PREGABALIN
  2. REQUIP [Concomitant]
     Active Substance: ROPINIROLE HYDROCHLORIDE
  3. CLONAZEPAM. [Suspect]
     Active Substance: CLONAZEPAM
     Indication: INSOMNIA
  4. IMITREX [Concomitant]
     Active Substance: SUMATRIPTAN SUCCINATE
  5. CYMBALTA [Concomitant]
     Active Substance: DULOXETINE HYDROCHLORIDE
  6. HYDROCODONE/ACETAMINOPHEN [Concomitant]
     Active Substance: ACETAMINOPHEN\HYDROCODONE
  7. TOPAMAX [Concomitant]
     Active Substance: TOPIRAMATE
  8. CLONAZEPAM. [Suspect]
     Active Substance: CLONAZEPAM
     Indication: DYSKINESIA
     Dosage: 1 MG, 1X/DAY
  9. BACLOFEN TABLETS [Concomitant]
     Active Substance: BACLOFEN
  10. PREDNISONE TABLETS [Concomitant]
     Active Substance: PREDNISONE
  11. PROLIA [Concomitant]
     Active Substance: DENOSUMAB
  12. SYNTHROID [Concomitant]
     Active Substance: LEVOTHYROXINE SODIUM
  13. VITAMIN D [Concomitant]
     Active Substance: CHOLECALCIFEROL
  14. PROPRANOLOL HCL TABLETS [Concomitant]
     Active Substance: PROPRANOLOL HYDROCHLORIDE
  15. AMITRIPTYLINE HCL [Concomitant]
     Active Substance: AMITRIPTYLINE

REACTIONS (1)
  - Off label use [Not Recovered/Not Resolved]
